FAERS Safety Report 20056136 (Version 1)
Quarter: 2021Q4

REPORT INFORMATION
  Report Type: Spontaneous
  Country: CH (occurrence: None)
  Receive Date: 20211111
  Receipt Date: 20211111
  Transmission Date: 20220303
  Serious: Yes (Other)
  Sender: FDA-Public Use
  Company Number: CH-ROCHE-2953455

PATIENT
  Age: 58 Year
  Sex: Male

DRUGS (12)
  1. RITUXIMAB [Suspect]
     Active Substance: RITUXIMAB
     Indication: Diffuse large B-cell lymphoma
     Dosage: 01/SEP/2020, 01/DEC/2020
     Route: 065
     Dates: start: 20190901
  2. OBINUTUZUMAB [Suspect]
     Active Substance: OBINUTUZUMAB
     Indication: Diffuse large B-cell lymphoma
     Route: 042
     Dates: start: 20200701
  3. CYCLOPHOSPHAMIDE [Concomitant]
     Active Substance: CYCLOPHOSPHAMIDE
     Dates: start: 20190901
  4. DOXORUBICIN HYDROCHLORIDE [Concomitant]
     Active Substance: DOXORUBICIN HYDROCHLORIDE
     Dates: start: 20190901
  5. VINCRISTINE [Concomitant]
     Active Substance: VINCRISTINE
     Dates: start: 20190901
  6. PREDNISONE [Concomitant]
     Active Substance: PREDNISONE
     Dates: start: 20190901
  7. BENDAMUSTINE [Concomitant]
     Active Substance: BENDAMUSTINE
     Dates: start: 20200701
  8. DEXAMETHASONE [Concomitant]
     Active Substance: DEXAMETHASONE
     Dates: start: 20200901
  9. CYTARABINE [Concomitant]
     Active Substance: CYTARABINE
     Dates: start: 20200901
  10. CISPLATIN [Concomitant]
     Active Substance: CISPLATIN
     Dates: start: 20200901
  11. GEMCITABINE [Concomitant]
     Active Substance: GEMCITABINE
     Dates: start: 20201201
  12. OXALIPLATIN [Concomitant]
     Active Substance: OXALIPLATIN
     Dates: start: 20201201

REACTIONS (1)
  - Disease progression [Unknown]
